FAERS Safety Report 8401293-6 (Version None)
Quarter: 2012Q2

REPORT INFORMATION
  Report Type: 
  Country: None (occurrence: None)
  Receive Date: 20120530
  Receipt Date: 20120530
  Transmission Date: 20120825
  Serious: Yes (Life-Threatening)
  Sender: FDA-Public Use
  Company Number: None

PATIENT
  Sex: Female
  Weight: 54.4316 kg

DRUGS (1)
  1. DOXYCYCLINE HYCLATE [Suspect]
     Indication: ARTHROPOD BITE
     Dosage: 100 MG 2X DAY
     Dates: start: 20120508, end: 20120509

REACTIONS (4)
  - VISION BLURRED [None]
  - HEADACHE [None]
  - FEELING ABNORMAL [None]
  - VOMITING [None]
